FAERS Safety Report 8634448 (Version 2)
Quarter: 2013Q1

REPORT INFORMATION
  Report Type: Spontaneous
  Country: US (occurrence: None)
  Receive Date: 20120612
  Receipt Date: 20130130
  Transmission Date: 20140127
  Serious: Yes (Death)
  Sender: FDA-Public Use
  Company Number: UTC-019409

PATIENT
  Age: 69 Year
  Sex: Female
  Weight: 51.4 kg

DRUGS (3)
  1. REMODULIN [Suspect]
     Indication: PULMONARY ARTERIAL HYPERTENSION
     Dosage: (80 NANGM), INTRAVENOUS
     Route: 042
     Dates: start: 20090129, end: 20120524
  2. TRACLEER [Concomitant]
  3. REVATIO(SILDENAFIL CITRATE) [Concomitant]

REACTIONS (2)
  - Pulmonary arterial hypertension [None]
  - Disease progression [None]
